FAERS Safety Report 24561542 (Version 1)
Quarter: 2024Q4

REPORT INFORMATION
  Report Type: Other
  Country: GB (occurrence: GB)
  Receive Date: 20241029
  Receipt Date: 20241029
  Transmission Date: 20250114
  Serious: Yes (Hospitalization)
  Sender: B BRAUN
  Company Number: GB-B.Braun Medical Inc.-2164031

PATIENT
  Age: 75 Year
  Sex: Male

DRUGS (3)
  1. METRONIDAZOLE [Suspect]
     Active Substance: METRONIDAZOLE
     Indication: Clostridium difficile infection
  2. VANCOMYCIN [Suspect]
     Active Substance: VANCOMYCIN
  3. Fluid resuscitation [Concomitant]

REACTIONS (1)
  - Drug ineffective [Unknown]
